FAERS Safety Report 9291761 (Version 1)
Quarter: 2013Q2

REPORT INFORMATION
  Report Type: Spontaneous
  Country: IT (occurrence: IT)
  Receive Date: 20130516
  Receipt Date: 20130516
  Transmission Date: 20140414
  Serious: Yes (Hospitalization, Other)
  Sender: FDA-Public Use
  Company Number: IT-009507513-1305ITA006794

PATIENT
  Age: 63 Year
  Sex: Male

DRUGS (5)
  1. REBETOL [Suspect]
     Dosage: 1000 MG ORAL DAILY
     Route: 048
     Dates: start: 20130302, end: 20130423
  2. PEGASYS [Suspect]
     Indication: HEPATITIS CHRONIC ACTIVE
     Dosage: 180 MCG WEEKLY
     Route: 058
     Dates: start: 20130302, end: 20130423
  3. TELAPREVIR [Suspect]
     Indication: HEPATITIS CHRONIC ACTIVE
     Dosage: 2250 MG DAILY
     Route: 048
     Dates: start: 20130302, end: 20130423
  4. NEBIVOLOL HYDROCHLORIDE [Concomitant]
  5. METFORMIN HYDROCHLORIDE [Concomitant]

REACTIONS (5)
  - Renal failure [Recovering/Resolving]
  - Amylase increased [Recovering/Resolving]
  - Lipase increased [Recovering/Resolving]
  - Leukopenia [Recovering/Resolving]
  - Anaemia [Recovering/Resolving]
